FAERS Safety Report 18463434 (Version 3)
Quarter: 2020Q4

REPORT INFORMATION
  Report Type: Spontaneous
  Country: US (occurrence: US)
  Receive Date: 20201104
  Receipt Date: 20201109
  Transmission Date: 20210114
  Serious: Yes (Life-Threatening, Hospitalization, Other)
  Sender: FDA-Public Use
  Company Number: US-PFM-2020-20479

PATIENT
  Age: 64 Year
  Sex: Male

DRUGS (2)
  1. PROPRANOLOL [Suspect]
     Active Substance: PROPRANOLOL HYDROCHLORIDE
     Indication: OFF LABEL USE
  2. PROPRANOLOL [Suspect]
     Active Substance: PROPRANOLOL HYDROCHLORIDE
     Indication: HYPERTENSION
     Route: 065

REACTIONS (12)
  - Cardiac arrest [Recovering/Resolving]
  - Encephalopathy [Unknown]
  - Hyperglycaemia [Unknown]
  - Product use issue [Unknown]
  - Product use in unapproved indication [Unknown]
  - Hyperkalaemia [Unknown]
  - Toxicity to various agents [Unknown]
  - Bradycardia [Recovering/Resolving]
  - Off label use [Unknown]
  - Syncope [Recovering/Resolving]
  - Hypotension [Recovering/Resolving]
  - Overdose [Unknown]
